FAERS Safety Report 8504158-4 (Version None)
Quarter: 2012Q3

REPORT INFORMATION
  Report Type: 
  Country: None (occurrence: None)
  Receive Date: 20120711
  Receipt Date: 20120702
  Transmission Date: 20120928
  Serious: Yes (Life-Threatening)
  Sender: FDA-Public Use
  Company Number: US-009507513-1206USA04556

PATIENT

DRUGS (6)
  1. JANUVIA [Suspect]
     Indication: BLOOD GLUCOSE
     Dosage: CUTTING 100 MG TABLET IN HALF AND TAKING 0.5 TABLET BID
     Route: 048
     Dates: start: 20120612, end: 20120621
  2. LEVOTIROXINA S.O [Concomitant]
  3. REMERON [Concomitant]
  4. SYNTHROID [Concomitant]
  5. ZOCOR [Concomitant]
     Route: 048
  6. METFORMIN HCL [Concomitant]

REACTIONS (4)
  - BLOOD GLUCOSE INCREASED [None]
  - WRONG TECHNIQUE IN DRUG USAGE PROCESS [None]
  - INAPPROPRIATE SCHEDULE OF DRUG ADMINISTRATION [None]
  - BLOOD GLUCOSE ABNORMAL [None]
